FAERS Safety Report 5944200-8 (Version None)
Quarter: 2008Q4

REPORT INFORMATION
  Report Type: 
  Country: None (occurrence: None)
  Receive Date: 20081106
  Receipt Date: 20081103
  Transmission Date: 20090506
  Serious: Yes (Other)
  Sender: FDA-Public Use
  Company Number: US-MERCK-0810USA01733

PATIENT
  Sex: Male
  Weight: 43 kg

DRUGS (1)
  1. SINGULAIR [Suspect]
     Indication: RHINITIS ALLERGIC
     Route: 048
     Dates: start: 20070701, end: 20080401

REACTIONS (4)
  - MOOD SWINGS [None]
  - PERSONALITY CHANGE [None]
  - SUICIDAL IDEATION [None]
  - TIC [None]
